FAERS Safety Report 5856545-0 (Version None)
Quarter: 2008Q3

REPORT INFORMATION
  Report Type: 
  Country: None (occurrence: None)
  Receive Date: 20080821
  Receipt Date: 20080813
  Transmission Date: 20090109
  Serious: Yes (Hospitalization)
  Sender: FDA-Public Use
  Company Number: 1000000558

PATIENT
  Age: 78 Year
  Sex: Male

DRUGS (11)
  1. ESCITALOPRAM OXALATE [Suspect]
     Dosage: 10 MG (10 MG, 1 IN 1 D), ORAL; 20 MG (20 MG, 1 IN 1 D), ORAL
     Route: 048
     Dates: start: 20070101, end: 20070101
  2. ESCITALOPRAM OXALATE [Suspect]
     Dosage: 10 MG (10 MG, 1 IN 1 D), ORAL; 20 MG (20 MG, 1 IN 1 D), ORAL
     Route: 048
     Dates: start: 20070101, end: 20070101
  3. MEMANTINE HCL [Suspect]
     Dosage: 5 MG, 5 MG, 1 IN 1 D), ORAL
     Route: 048
     Dates: start: 20070527, end: 20070528
  4. DEPAKINE (250 MILLIGRAM) [Suspect]
     Dosage: 500 MG (250 MG, 2 IN 1 D), ORAL; 750 MG (750 MG, 1 IN 1 D), ORAL
     Route: 048
     Dates: start: 20070101, end: 20070101
  5. DEPAKINE (250 MILLIGRAM) [Suspect]
     Dosage: 500 MG (250 MG, 2 IN 1 D), ORAL; 750 MG (750 MG, 1 IN 1 D), ORAL
     Route: 048
     Dates: start: 20070101, end: 20070101
  6. LOXAPAC (DROPS (FOR ORAL USE)) [Suspect]
     Dosage: 25 GTT (25 GTT, 1 IN 1 D), ORAL
     Route: 048
     Dates: start: 20070101, end: 20070627
  7. ATHYMIL [Suspect]
     Dates: start: 20070101, end: 20070626
  8. ATHYMIL [Suspect]
     Dates: start: 20070101, end: 20070626
  9. ASPEGIC 1000 [Suspect]
     Dosage: 100 MG (100 MG, 1 IN 1 D)
     Dates: start: 20060601
  10. RIVOTRIL (DROPS (FOR ORAL USE)) [Concomitant]
  11. RISPERIDONE [Concomitant]

REACTIONS (7)
  - AGGRESSION [None]
  - DISTURBANCE IN ATTENTION [None]
  - FALL [None]
  - PSYCHOMOTOR RETARDATION [None]
  - RESTLESSNESS [None]
  - SUBDURAL HAEMATOMA [None]
  - TRAUMATIC BRAIN INJURY [None]
